FAERS Safety Report 8438974-4 (Version None)
Quarter: 2012Q2

REPORT INFORMATION
  Report Type: 
  Country: None (occurrence: None)
  Receive Date: 20120615
  Receipt Date: 20120605
  Transmission Date: 20120825
  Serious: Yes (Other)
  Sender: FDA-Public Use
  Company Number: US-JNJFOC-20120603759

PATIENT

DRUGS (21)
  1. CYCLOPHOSPHAMIDE [Suspect]
     Indication: CHRONIC MYELOID LEUKAEMIA
     Route: 065
  2. VINCRISTINE SULFATE [Suspect]
     Indication: CHRONIC MYELOID LEUKAEMIA
     Route: 065
  3. VINCRISTINE SULFATE [Suspect]
     Indication: ACUTE LYMPHOCYTIC LEUKAEMIA
     Route: 065
  4. DEXAMETHASONE [Suspect]
     Indication: CHROMOSOME ANALYSIS ABNORMAL
     Route: 065
  5. METHOTREXATE [Suspect]
     Indication: CHROMOSOME ANALYSIS ABNORMAL
     Route: 065
  6. DASATINIB [Suspect]
     Indication: CHRONIC MYELOID LEUKAEMIA
     Dosage: FIRST 14 DAYS OF EACH OF 8 CYCLES OF ALTERNATING HYPERCVAD
     Route: 048
  7. DASATINIB [Suspect]
     Indication: CHROMOSOME ANALYSIS ABNORMAL
     Dosage: FIRST 14 DAYS OF EACH OF 8 CYCLES OF ALTERNATING HYPERCVAD
     Route: 048
  8. DASATINIB [Suspect]
     Indication: ACUTE LYMPHOCYTIC LEUKAEMIA
     Dosage: FIRST 14 DAYS OF EACH OF 8 CYCLES OF ALTERNATING HYPERCVAD
     Route: 048
  9. CYCLOPHOSPHAMIDE [Suspect]
     Indication: ACUTE LYMPHOCYTIC LEUKAEMIA
     Route: 065
  10. DEXAMETHASONE [Suspect]
     Indication: ACUTE LYMPHOCYTIC LEUKAEMIA
     Route: 065
  11. CYTARABINE [Suspect]
     Indication: ACUTE LYMPHOCYTIC LEUKAEMIA
     Route: 065
  12. METHOTREXATE [Suspect]
     Indication: CHRONIC MYELOID LEUKAEMIA
     Route: 065
  13. DOXORUBICIN HCL [Suspect]
     Indication: CHROMOSOME ANALYSIS ABNORMAL
     Route: 042
  14. DOXORUBICIN HCL [Suspect]
     Indication: CHRONIC MYELOID LEUKAEMIA
     Route: 042
  15. DOXORUBICIN HCL [Suspect]
     Indication: ACUTE LYMPHOCYTIC LEUKAEMIA
     Route: 042
  16. CYCLOPHOSPHAMIDE [Suspect]
     Indication: CHROMOSOME ANALYSIS ABNORMAL
     Route: 065
  17. CYTARABINE [Suspect]
     Indication: CHROMOSOME ANALYSIS ABNORMAL
     Route: 065
  18. CYTARABINE [Suspect]
     Indication: CHRONIC MYELOID LEUKAEMIA
     Route: 065
  19. METHOTREXATE [Suspect]
     Indication: ACUTE LYMPHOCYTIC LEUKAEMIA
     Route: 065
  20. VINCRISTINE SULFATE [Suspect]
     Indication: CHROMOSOME ANALYSIS ABNORMAL
     Route: 065
  21. DEXAMETHASONE [Suspect]
     Indication: CHRONIC MYELOID LEUKAEMIA
     Route: 065

REACTIONS (13)
  - PLEURAL EFFUSION [None]
  - UROGENITAL HAEMORRHAGE [None]
  - HYPOCALCAEMIA [None]
  - HYPERBILIRUBINAEMIA [None]
  - PERICARDIAL EFFUSION [None]
  - DIARRHOEA [None]
  - PLATELET DISORDER [None]
  - GASTROINTESTINAL HAEMORRHAGE [None]
  - HYPOPHOSPHATAEMIA [None]
  - TRANSAMINASES INCREASED [None]
  - OFF LABEL USE [None]
  - INFECTION [None]
  - SUBDURAL HAEMATOMA [None]
